FAERS Safety Report 5825954-8 (Version None)
Quarter: 2008Q3

REPORT INFORMATION
  Report Type: 
  Country: None (occurrence: None)
  Receive Date: 20080729
  Receipt Date: 20080722
  Transmission Date: 20090109
  Serious: Yes (Hospitalization)
  Sender: FDA-Public Use
  Company Number: PHHY2008CO14945

PATIENT
  Age: 68 Year
  Sex: Female

DRUGS (2)
  1. ZOLEDRONIC ACID [Suspect]
     Indication: OSTEOPOROSIS POSTMENOPAUSAL
     Dosage: 5 MG / 100ML PER YEAR
     Route: 042
     Dates: start: 20080610
  2. VALSARTAN [Concomitant]

REACTIONS (3)
  - EYE INFLAMMATION [None]
  - HEADACHE [None]
  - PAIN [None]
